FAERS Safety Report 18358767 (Version 2)
Quarter: 2022Q1

REPORT INFORMATION
  Report Type: Spontaneous
  Country: CH (occurrence: CH)
  Receive Date: 20201008
  Receipt Date: 20220202
  Transmission Date: 20220423
  Serious: Yes (Death, Life-Threatening, Hospitalization, Disabling)
  Sender: FDA-Public Use
  Company Number: CH-SM-2020-16257

PATIENT
  Age: 75 Year
  Sex: Male

DRUGS (24)
  1. PERINDOPRIL [Suspect]
     Active Substance: PERINDOPRIL
     Indication: Hypertension
     Dosage: 5 MILLIGRAM DAILY;
     Route: 048
     Dates: start: 20200410, end: 20200421
  2. PIPERACILLIN SODIUM\TAZOBACTAM SODIUM [Suspect]
     Active Substance: PIPERACILLIN SODIUM\TAZOBACTAM SODIUM
     Indication: Pneumonia bacterial
     Dosage: 9 GRAM DAILY;
     Route: 041
     Dates: start: 20200411, end: 20200414
  3. PIPERACILLIN SODIUM\TAZOBACTAM SODIUM [Suspect]
     Active Substance: PIPERACILLIN SODIUM\TAZOBACTAM SODIUM
     Dosage: 6.75 GRAM DAILY;
     Route: 041
     Dates: start: 20200414, end: 20200419
  4. IMIPENEM AND CILASTATIN [Suspect]
     Active Substance: CILASTATIN SODIUM\IMIPENEM
     Dosage: 500 MILLIGRAM DAILY;
     Route: 041
     Dates: start: 20200422, end: 20200422
  5. ASPIRIN [Suspect]
     Active Substance: ASPIRIN
     Indication: Myocardial ischaemia
     Dosage: 100 MILLIGRAM DAILY;
     Route: 048
     Dates: start: 20200331, end: 20200422
  6. ASPIRIN [Suspect]
     Active Substance: ASPIRIN
     Indication: Cardiac valve disease
  7. ASPIRIN [Suspect]
     Active Substance: ASPIRIN
     Indication: Cerebrovascular accident
  8. AMOXICILLIN\CLAVULANIC ACID [Suspect]
     Active Substance: AMOXICILLIN\CLAVULANIC ACID
     Indication: Respiratory tract infection
     Dosage: 1200 MILLIGRAM DAILY;
     Route: 041
     Dates: start: 20200330, end: 20200402
  9. AMOXICILLIN\CLAVULANIC ACID [Suspect]
     Active Substance: AMOXICILLIN\CLAVULANIC ACID
     Dosage: 1250 MILLIGRAM DAILY;
     Route: 041
     Dates: start: 20200403, end: 20200404
  10. INDAPAMIDE\PERINDOPRIL [Suspect]
     Active Substance: INDAPAMIDE\PERINDOPRIL
     Indication: Cerebrovascular accident
     Dosage: 10/2.5 1X PER DAY
     Route: 048
     Dates: start: 20200330, end: 20200407
  11. INDAPAMIDE\PERINDOPRIL [Suspect]
     Active Substance: INDAPAMIDE\PERINDOPRIL
     Dosage: 5/1.25
     Route: 048
     Dates: start: 20200407, end: 20200409
  12. DAFALGAN [Suspect]
     Active Substance: ACETAMINOPHEN
     Dosage: 3000 MILLIGRAM DAILY;
     Route: 048
     Dates: start: 20200331, end: 20200407
  13. DAFALGAN [Suspect]
     Active Substance: ACETAMINOPHEN
     Dosage: 3000 MILLIGRAM DAILY;
     Route: 048
     Dates: start: 20200409, end: 20200410
  14. SIMVASTATIN [Suspect]
     Active Substance: SIMVASTATIN
     Dosage: 40 MILLIGRAM DAILY;
     Route: 048
     Dates: start: 20200330, end: 20200407
  15. SIMVASTATIN [Suspect]
     Active Substance: SIMVASTATIN
     Dosage: 20 MILLIGRAM DAILY;
     Route: 048
     Dates: start: 20200408, end: 20200415
  16. LOPINAVIR\RITONAVIR [Concomitant]
     Active Substance: LOPINAVIR\RITONAVIR
     Dosage: IN TOTAL
     Dates: start: 20200331, end: 20200331
  17. AMLODIPINE [Concomitant]
     Active Substance: AMLODIPINE BESYLATE
     Dates: start: 20200330, end: 20200421
  18. CLONAZEPAM [Concomitant]
     Active Substance: CLONAZEPAM
     Dates: start: 20200422, end: 20200422
  19. DUTASTERIDE\TAMSULOSIN [Concomitant]
     Active Substance: DUTASTERIDE\TAMSULOSIN
     Dates: start: 20200331, end: 20200421
  20. HEPARIN [Concomitant]
     Active Substance: HEPARIN SODIUM
     Dates: start: 20200331, end: 20200422
  21. LEVOTHYROXINE [Concomitant]
     Active Substance: LEVOTHYROXINE
     Dates: start: 20200331, end: 20200422
  22. MORPHINE [Concomitant]
     Active Substance: MORPHINE
     Dates: start: 20200421, end: 20200422
  23. TORSEMIDE [Concomitant]
     Active Substance: TORSEMIDE
     Dates: start: 20200406, end: 20200422
  24. SODIUM POLYSTYRENE SULFONATE [Concomitant]
     Active Substance: SODIUM POLYSTYRENE SULFONATE
     Dates: start: 20200421, end: 20200421

REACTIONS (1)
  - Eosinophilic pneumonia acute [Fatal]

NARRATIVE: CASE EVENT DATE: 20200401
